FAERS Safety Report 6417003-8 (Version None)
Quarter: 2009Q4

REPORT INFORMATION
  Report Type: 
  Country: None (occurrence: None)
  Receive Date: 20091027
  Receipt Date: 20090930
  Transmission Date: 20100525
  Serious: Yes (Other)
  Sender: FDA-Public Use
  Company Number: US-ALLERGAN-0913612US

PATIENT
  Age: 40 Year
  Sex: Male

DRUGS (3)
  1. ALPHAGAN P [Suspect]
     Indication: INTRAOCULAR PRESSURE INCREASED
     Dosage: 1 GTT, SINGLE
     Route: 047
     Dates: start: 20090916, end: 20090916
  2. ALPHAGAN P [Suspect]
     Indication: POSTOPERATIVE CARE
  3. ISOTOLOL [Suspect]
     Indication: INTRAOCULAR PRESSURE INCREASED
     Dosage: UNK
     Route: 047

REACTIONS (4)
  - EYELID PTOSIS [None]
  - INSOMNIA [None]
  - MIOSIS [None]
  - PSYCHOTIC DISORDER [None]
